FAERS Safety Report 8860611 (Version 3)
Quarter: 2012Q4

REPORT INFORMATION
  Report Type: 
  Country: JP (occurrence: JP)
  Receive Date: 20121025
  Receipt Date: 20121127
  Transmission Date: 20130627
  Serious: Yes (Hospitalization)
  Sender: FDA-Public Use
  Company Number: JP-PFIZER INC-2012267097

PATIENT
  Age: 79 Year
  Sex: Male

DRUGS (2)
  1. CARDENALIN [Suspect]
     Dosage: UNK
     Route: 048
  2. BUFFERIN [Suspect]
     Dosage: UNK
     Route: 048

REACTIONS (1)
  - Interstitial lung disease [Not Recovered/Not Resolved]
